FAERS Safety Report 10508665 (Version 1)
Quarter: 2014Q4

REPORT INFORMATION
  Report Type: Spontaneous
  Country: US (occurrence: None)
  Receive Date: 20141008
  Receipt Date: 20141008
  Transmission Date: 20150528
  Serious: Yes (Life-Threatening, Hospitalization)
  Sender: FDA-Public Use
  Company Number: None

PATIENT
  Age: 68 Year
  Sex: Male
  Weight: 79 kg

DRUGS (2)
  1. MINOCYCLINE [Suspect]
     Active Substance: MINOCYCLINE\MINOCYCLINE HYDROCHLORIDE
     Indication: CELLULITIS
     Dosage: MG  BID  PO?~09/23/2013 THRU 10/30/2013
     Route: 048
     Dates: start: 20130923, end: 20131030
  2. LISINOPRIL. [Suspect]
     Active Substance: LISINOPRIL
     Indication: HYPERTENSION
     Dosage: MG EVERY DAY PO?~02/04/2013 THRU 10/30/2013
     Route: 048
     Dates: start: 20130204, end: 20131030

REACTIONS (1)
  - Angioedema [None]

NARRATIVE: CASE EVENT DATE: 20131030
